FAERS Safety Report 6710350-1 (Version None)
Quarter: 2010Q2

REPORT INFORMATION
  Report Type: 
  Country: None (occurrence: None)
  Receive Date: 20100504
  Receipt Date: 20100428
  Transmission Date: 20101027
  Serious: Yes (Hospitalization, Other)
  Sender: FDA-Public Use
  Company Number: US-ELI_LILLY_AND_COMPANY-US201003003794

PATIENT
  Sex: Male
  Weight: 85.714 kg

DRUGS (11)
  1. ALIMTA [Suspect]
     Indication: LUNG CANCER METASTATIC
     Dosage: 500 D/F, EVERY 21 DAYS
     Route: 042
     Dates: start: 20090701, end: 20100217
  2. AVASTIN [Concomitant]
     Indication: LUNG CANCER METASTATIC
     Dosage: UNK, UNKNOWN
     Route: 065
     Dates: start: 20090701
  3. CARBOPLATIN [Concomitant]
     Indication: LUNG CANCER METASTATIC
     Dates: start: 20090701
  4. DECADRON [Concomitant]
     Dosage: 4 MG, 2/D X 3 DAYS WITH CHEMO
  5. FOLIC ACID [Concomitant]
  6. VITAMIN B-12 [Concomitant]
     Dosage: 1000 MG, EVERY 3 CYCLES
  7. COMBIVENT [Concomitant]
  8. ZOCOR [Concomitant]
  9. GLUCOPHAGE [Concomitant]
  10. HYDROCHLOROTHIAZIDE [Concomitant]
  11. PRINIVIL [Concomitant]

REACTIONS (2)
  - PULMONARY EMBOLISM [None]
  - PULMONARY HYPERTENSION [None]
